FAERS Safety Report 5454593-6 (Version None)
Quarter: 2007Q3

REPORT INFORMATION
  Report Type: 
  Country: None (occurrence: None)
  Receive Date: 20070917
  Receipt Date: 20070905
  Transmission Date: 20080115
  Serious: Yes (Hospitalization)
  Sender: FDA-Public Use
  Company Number: NO-SHR-NO-2007-034198

PATIENT
  Age: 30 Year
  Sex: Female

DRUGS (1)
  1. YASMIN [Suspect]
     Indication: ORAL CONTRACEPTION
     Dosage: 1 TAB(S), 21D/28D
     Route: 048
     Dates: start: 20061114, end: 20070827

REACTIONS (3)
  - DYSPNOEA [None]
  - PNEUMONIA [None]
  - PULMONARY EMBOLISM [None]
